FAERS Safety Report 12922327 (Version 1)
Quarter: 2016Q4

REPORT INFORMATION
  Report Type: Spontaneous
  Country: US (occurrence: US)
  Receive Date: 20161107
  Receipt Date: 20161107
  Transmission Date: 20170207
  Serious: No
  Sender: FDA-Public Use
  Company Number: None

PATIENT
  Age: 48 Year
  Sex: Male

DRUGS (4)
  1. TESTOPEL [Suspect]
     Active Substance: TESTOSTERONE
     Indication: TESTICULAR DISORDER
     Dosage: (75MG) 12 PELLETS QUM SQ
     Route: 058
     Dates: start: 20151110
  2. ALPRAZOLAM. [Concomitant]
     Active Substance: ALPRAZOLAM
  3. ALREX [Concomitant]
     Active Substance: LOTEPREDNOL ETABONATE
  4. HC VALERATE [Concomitant]

REACTIONS (1)
  - Device expulsion [None]

NARRATIVE: CASE EVENT DATE: 2016
